FAERS Safety Report 6424765-2 (Version None)
Quarter: 2009Q4

REPORT INFORMATION
  Report Type: 
  Country: None (occurrence: None)
  Receive Date: 20091030
  Receipt Date: 20091030
  Transmission Date: 20100525
  Serious: Yes (Life-Threatening, Hospitalization)
  Sender: FDA-Public Use
  Company Number: None

PATIENT
  Age: 42 Year

DRUGS (1)
  1. LISINOPRIL [Suspect]
     Indication: ANAPHYLACTIC REACTION
     Dosage: 10 MG EVERY DAY PO
     Route: 048
     Dates: start: 20090113, end: 20090115

REACTIONS (1)
  - ANAPHYLACTIC REACTION [None]
